FAERS Safety Report 6218803-X (Version None)
Quarter: 2009Q2

REPORT INFORMATION
  Report Type: 
  Country: None (occurrence: None)
  Receive Date: 20090608
  Receipt Date: 20090525
  Transmission Date: 20091009
  Serious: Yes (Hospitalization)
  Sender: FDA-Public Use
  Company Number: SE-ELI_LILLY_AND_COMPANY-SE200905005782

PATIENT
  Age: 32 Year
  Sex: Male

DRUGS (2)
  1. FONTEX [Suspect]
     Indication: DEPRESSION
     Dosage: 20 MG, DAILY (1/D)
     Route: 048
     Dates: start: 20000323, end: 20000407
  2. FONTEX [Suspect]
     Route: 048
     Dates: start: 20010301

REACTIONS (1)
  - GLAUCOMA [None]
